FAERS Safety Report 13875216 (Version 1)
Quarter: 2017Q3

REPORT INFORMATION
  Report Type: Other
  Country: GB (occurrence: GD)
  Receive Date: 20170816
  Receipt Date: 20170816
  Transmission Date: 20171127
  Serious: Yes (Other)
  Sender: FDA-Public Use
  Company Number: GD-INTERNATIONAL MEDICATION SYSTEMS, LIMITED-2024725

PATIENT
  Age: 31 Year
  Sex: Female

DRUGS (1)
  1. LIDOCAINE INJECTION [Suspect]
     Active Substance: LIDOCAINE
     Route: 058

REACTIONS (2)
  - Pneumocephalus [Recovered/Resolved]
  - Maternal exposure during pregnancy [Recovered/Resolved]
